FAERS Safety Report 6364421-2 (Version None)
Quarter: 2009Q3

REPORT INFORMATION
  Report Type: 
  Country: None (occurrence: None)
  Receive Date: 20090919
  Receipt Date: 20090720
  Transmission Date: 20100115
  Serious: No
  Sender: FDA-Public Use
  Company Number: US-ABBOTT-09P-163-0587015-00

PATIENT
  Sex: Female
  Weight: 67.192 kg

DRUGS (3)
  1. HUMIRA [Suspect]
     Indication: COLITIS ULCERATIVE
     Dates: start: 20090601, end: 20090601
  2. HUMIRA [Suspect]
     Dates: start: 20090601, end: 20090601
  3. HUMIRA [Suspect]
     Dates: start: 20090701

REACTIONS (2)
  - DRUG DOSE OMISSION [None]
  - INTESTINAL FUNCTIONAL DISORDER [None]
